FAERS Safety Report 6613100-2 (Version None)
Quarter: 2010Q1

REPORT INFORMATION
  Report Type: 
  Country: None (occurrence: None)
  Receive Date: 20100223
  Receipt Date: 20100207
  Transmission Date: 20100710
  Serious: Yes (Other)
  Sender: FDA-Public Use
  Company Number: GB-DEXPHARM-20100094

PATIENT
  Age: 22 Year
  Sex: Male

DRUGS (2)
  1. OMEPRAZOLE [Suspect]
     Indication: DYSPEPSIA
  2. ZAPONEX [Suspect]
     Dosage: DOSE: 350 MG MILLIGRAM(S) SEP. DOSAGES / INTERVAL: 1 IN 1 DAY ORAL
     Route: 048

REACTIONS (4)
  - DYSPNOEA [None]
  - SEDATION [None]
  - SOMNOLENCE [None]
  - VOMITING [None]
